FAERS Safety Report 23936908 (Version 1)
Quarter: 2024Q2

REPORT INFORMATION
  Report Type: Spontaneous
  Country: US (occurrence: None)
  Receive Date: 20240603
  Receipt Date: 20240603
  Transmission Date: 20240716
  Serious: Yes (Congenital Anomaly)
  Sender: FDA-Public Use
  Company Number: None

PATIENT
  Age: 6 Day
  Sex: Male
  Weight: 2.08 kg

DRUGS (1)
  1. DUTASTERIDE [Suspect]
     Active Substance: DUTASTERIDE

REACTIONS (6)
  - Foetal exposure during pregnancy [None]
  - Congenital genital malformation male [None]
  - Hypospadias [None]
  - Penis disorder [None]
  - Scrotal disorder [None]
  - Cryptorchism [None]

NARRATIVE: CASE EVENT DATE: 20240519
